FAERS Safety Report 25456924 (Version 2)
Quarter: 2025Q2

REPORT INFORMATION
  Report Type: Spontaneous
  Country: US (occurrence: US)
  Receive Date: 20250619
  Receipt Date: 20250629
  Transmission Date: 20250717
  Serious: No
  Sender: SANOFI AVENTIS
  Company Number: US-SA-2025SA173426

PATIENT
  Age: 50 Year
  Sex: Female
  Weight: 67.27 kg

DRUGS (5)
  1. DUPIXENT [Suspect]
     Active Substance: DUPILUMAB
     Indication: Dermatitis atopic
     Dosage: 300 MG, QOW
     Route: 058
     Dates: start: 2024
  2. FISH OIL [Concomitant]
     Active Substance: FISH OIL
  3. BIOTIN [Concomitant]
     Active Substance: BIOTIN
  4. MAGNESIUM [Concomitant]
     Active Substance: MAGNESIUM
  5. GLUCOSAMINE [Concomitant]
     Active Substance: GLUCOSAMINE

REACTIONS (7)
  - Accidental exposure to product [Unknown]
  - Exposure via skin contact [Unknown]
  - Injection site pain [Unknown]
  - Dry skin [Unknown]
  - Therapeutic response shortened [Unknown]
  - Fear of injection [Unknown]
  - Skin fissures [Unknown]

NARRATIVE: CASE EVENT DATE: 20250615
